FAERS Safety Report 6103020-4 (Version None)
Quarter: 2009Q1

REPORT INFORMATION
  Report Type: 
  Country: None (occurrence: None)
  Receive Date: 20090305
  Receipt Date: 20090304
  Transmission Date: 20090719
  Serious: Yes (Hospitalization)
  Sender: FDA-Public Use
  Company Number: PHHO2007US14204

PATIENT
  Sex: Male
  Weight: 86.9 kg

DRUGS (2)
  1. LOTREL [Suspect]
     Indication: HYPERTENSION
     Dosage: LEVEL 1
     Route: 048
     Dates: start: 20040408
  2. LOTREL [Suspect]
     Dosage: LEVEL 2
     Route: 048
     Dates: end: 20070816

REACTIONS (4)
  - CONCOMITANT DISEASE PROGRESSION [None]
  - GASTROOESOPHAGEAL REFLUX DISEASE [None]
  - HAEMATOCRIT DECREASED [None]
  - OESOPHAGITIS ULCERATIVE [None]
